FAERS Safety Report 10441406 (Version 1)
Quarter: 2014Q3

REPORT INFORMATION
  Report Type: Spontaneous
  Country: US (occurrence: US)
  Receive Date: 20140909
  Receipt Date: 20140909
  Transmission Date: 20150326
  Serious: Yes (Other)
  Sender: FDA-Public Use
  Company Number: US-PFIZER INC-2014245859

PATIENT
  Age: 79 Year
  Sex: Female

DRUGS (1)
  1. XALATAN [Suspect]
     Active Substance: LATANOPROST
     Indication: OPEN ANGLE GLAUCOMA
     Dosage: 1 GTT, DAILY(1 DROP BOTH EYE IN EVENING AT HS)
     Route: 047
     Dates: start: 20140814

REACTIONS (3)
  - Cataract [Unknown]
  - Ear pain [Unknown]
  - Visual impairment [Unknown]
